FAERS Safety Report 10185336 (Version 1)
Quarter: 2014Q2

REPORT INFORMATION
  Report Type: Other
  Country: FR (occurrence: FR)
  Receive Date: 20140521
  Receipt Date: 20140521
  Transmission Date: 20141212
  Serious: Yes (Life-Threatening, Hospitalization)
  Sender: FDA-Public Use
  Company Number: FR-US-EMD SERONO, INC.-7292488

PATIENT
  Age: 41 Year
  Sex: Female

DRUGS (1)
  1. INTERFERON BETA [Suspect]
     Indication: MULTIPLE SCLEROSIS
     Dates: start: 2002

REACTIONS (11)
  - Malignant hypertension [Recovering/Resolving]
  - Posterior reversible encephalopathy syndrome [Recovered/Resolved]
  - Haemolysis [Recovering/Resolving]
  - Retinopathy hypertensive [Unknown]
  - Hyperaldosteronism [Recovering/Resolving]
  - Renal impairment [Recovering/Resolving]
  - Blood potassium decreased [Recovering/Resolving]
  - Myocardial necrosis marker increased [Recovering/Resolving]
  - Pancreatic enzymes increased [Recovering/Resolving]
  - Hepatic enzyme increased [Recovering/Resolving]
  - Convulsion [Unknown]
